FAERS Safety Report 8310347-4 (Version None)
Quarter: 2012Q2

REPORT INFORMATION
  Report Type: 
  Country: None (occurrence: None)
  Receive Date: 20120425
  Receipt Date: 20120421
  Transmission Date: 20120825
  Serious: Yes (Death, Other)
  Sender: FDA-Public Use
  Company Number: PHHY2011AR84663

PATIENT
  Sex: Male

DRUGS (1)
  1. TASIGNA [Suspect]
     Indication: CHRONIC MYELOID LEUKAEMIA
     Dosage: 800 MG, DAILY
     Route: 048
     Dates: start: 20110201

REACTIONS (8)
  - ANAEMIA [None]
  - CEREBROVASCULAR ACCIDENT [None]
  - BONE MARROW DISORDER [None]
  - THROMBOCYTOPENIA [None]
  - LEUKOCYTOSIS [None]
  - BONE MARROW FAILURE [None]
  - HAEMATOCHEZIA [None]
  - BLOOD URINE PRESENT [None]
